FAERS Safety Report 18229901 (Version 1)
Quarter: 2020Q3

REPORT INFORMATION
  Report Type: Spontaneous
  Country: LK (occurrence: LK)
  Receive Date: 20200904
  Receipt Date: 20200904
  Transmission Date: 20201103
  Serious: Yes (Other)
  Sender: FDA-Public Use
  Company Number: LK-LUPIN PHARMACEUTICALS INC.-2020-05427

PATIENT
  Age: 57 Year
  Sex: Female

DRUGS (4)
  1. DAPSONE. [Concomitant]
     Active Substance: DAPSONE
     Indication: TUBERCULOID LEPROSY
     Dosage: 100 MILLIGRAM, QD
     Route: 065
  2. CLOFAZIMINE [Concomitant]
     Active Substance: CLOFAZIMINE
     Indication: TUBERCULOID LEPROSY
     Dosage: 50 MILLIGRAM, QD
     Route: 065
  3. CLOFAZIMINE [Concomitant]
     Active Substance: CLOFAZIMINE
     Dosage: 300 MILLIGRAM?ONCE A MONTH
     Route: 065
  4. RIFAMPIN. [Suspect]
     Active Substance: RIFAMPIN
     Indication: TUBERCULOID LEPROSY
     Dosage: UNK?ADMINISTERED MONTHLY
     Route: 065

REACTIONS (1)
  - Drug resistance [Unknown]
